FAERS Safety Report 25549102 (Version 1)
Quarter: 2025Q3

REPORT INFORMATION
  Report Type: Spontaneous
  Country: US (occurrence: US)
  Receive Date: 20250714
  Receipt Date: 20250714
  Transmission Date: 20251020
  Serious: No
  Sender: Kenvue
  Company Number: US-KENVUE-20250701570

PATIENT
  Sex: Female

DRUGS (2)
  1. TYLENOL 8 HR ARTHRITIS PAIN [Suspect]
     Active Substance: ACETAMINOPHEN
     Indication: Back pain
     Dosage: 2 DOSAGE FORM, THRICE A DAY
     Route: 065
     Dates: start: 2025
  2. ADVIL [Suspect]
     Active Substance: IBUPROFEN
     Indication: Product used for unknown indication
     Route: 065
     Dates: start: 2025

REACTIONS (2)
  - Adverse event [Not Recovered/Not Resolved]
  - Product use in unapproved indication [Unknown]

NARRATIVE: CASE EVENT DATE: 20250101
